FAERS Safety Report 5382685-9 (Version None)
Quarter: 2007Q3

REPORT INFORMATION
  Report Type: 
  Country: None (occurrence: None)
  Receive Date: 20070703
  Receipt Date: 20070703
  Transmission Date: 20080115
  Serious: Yes (Congenital Anomaly, Other)
  Sender: FDA-Public Use
  Company Number: None

PATIENT
  Age: 30 Year
  Sex: Female

DRUGS (1)
  1. CELEXA [Suspect]
     Indication: PREMENSTRUAL SYNDROME
     Dosage: 20MG EVERY DAY PO
     Route: 048
     Dates: start: 20020801, end: 20030429

REACTIONS (6)
  - DRUG EXPOSURE BEFORE PREGNANCY [None]
  - DRUG EXPOSURE DURING PREGNANCY [None]
  - METRORRHAGIA [None]
  - NAUSEA [None]
  - PROGESTERONE DECREASED [None]
  - VOMITING [None]
